FAERS Safety Report 25407552 (Version 1)
Quarter: 2025Q2

REPORT INFORMATION
  Report Type: Spontaneous
  Country: US (occurrence: US)
  Receive Date: 20250606
  Receipt Date: 20250606
  Transmission Date: 20250717
  Serious: No
  Sender: MERCK SHARP & DOHME LLC
  Company Number: US-009507513-2285034

PATIENT
  Age: 78 Year
  Sex: Female

DRUGS (2)
  1. KEYTRUDA [Suspect]
     Active Substance: PEMBROLIZUMAB
     Indication: Endometrial cancer
  2. LENVIMA [Suspect]
     Active Substance: LENVATINIB
     Indication: Endometrial cancer
     Route: 048

REACTIONS (5)
  - Eating disorder [Unknown]
  - Asthenia [Not Recovered/Not Resolved]
  - Peripheral swelling [Recovering/Resolving]
  - Rash erythematous [Recovered/Resolved]
  - Fatigue [Not Recovered/Not Resolved]
